FAERS Safety Report 9958193 (Version 1)
Quarter: 2014Q1

REPORT INFORMATION
  Report Type: Report from Study
  Country: US (occurrence: US)
  Receive Date: 20140304
  Receipt Date: 20140304
  Transmission Date: 20141002
  Serious: No
  Sender: FDA-Public Use
  Company Number: US-ABBVIE-13P-163-1095154-00

PATIENT
  Age: 42 Year
  Sex: Female
  Weight: 109.87 kg

DRUGS (20)
  1. HUMIRA [Suspect]
     Indication: PSORIASIS
     Dates: start: 20130402
  2. HUMIRA [Suspect]
     Indication: PSORIATIC ARTHROPATHY
  3. GABAPENTIN [Concomitant]
     Indication: NEUROPATHY PERIPHERAL
  4. HUMALOG [Concomitant]
     Indication: DIABETES MELLITUS
  5. CELEXA [Concomitant]
     Indication: DEPRESSION
  6. LASIX [Concomitant]
     Indication: FLUID RETENTION
  7. COZAAR [Concomitant]
     Indication: BLOOD PRESSURE MANAGEMENT
  8. PRAVASTATIN [Concomitant]
     Indication: CHOLESTEROSIS
  9. ADVAIR [Concomitant]
     Indication: ASTHMA
  10. PROAIR [Concomitant]
     Indication: ASTHMA
  11. ALBUTEROL [Concomitant]
     Indication: ASTHMA
  12. QVAR [Concomitant]
     Indication: ASTHMA
  13. TOPAMAX [Concomitant]
     Indication: MIGRAINE
  14. RANITIDINE [Concomitant]
     Indication: GASTROOESOPHAGEAL REFLUX DISEASE
  15. VITAMIN D [Concomitant]
     Indication: PRODUCT USED FOR UNKNOWN INDICATION
  16. CLOBETASOL [Concomitant]
     Indication: PSORIASIS
  17. TRIAMCINOLONE [Concomitant]
     Indication: PSORIASIS
  18. BENADRYL [Concomitant]
     Indication: PRURITUS
  19. FLEXERIL [Concomitant]
     Indication: MUSCLE SPASMS
  20. LYRICA [Concomitant]
     Indication: FIBROMYALGIA

REACTIONS (2)
  - Drug dose omission [Unknown]
  - Injection site pain [Not Recovered/Not Resolved]
